FAERS Safety Report 14417870 (Version 3)
Quarter: 2018Q3

REPORT INFORMATION
  Report Type: Spontaneous
  Country: US (occurrence: US)
  Receive Date: 20180122
  Receipt Date: 20180831
  Transmission Date: 20181010
  Serious: No
  Sender: FDA-Public Use
  Company Number: US-INTERCEPT-PMOCA2017001065

PATIENT

DRUGS (13)
  1. OCALIVA [Suspect]
     Active Substance: OBETICHOLIC ACID
     Dosage: 10 MG, QD
     Route: 048
     Dates: end: 20180402
  2. OCALIVA [Suspect]
     Active Substance: OBETICHOLIC ACID
     Dosage: 10 MG, QD
     Route: 048
     Dates: start: 201709, end: 20180224
  3. REXULTI [Concomitant]
     Active Substance: BREXPIPRAZOLE
  4. URSODIOL. [Concomitant]
     Active Substance: URSODIOL
  5. CLOPIDOGREL [Concomitant]
     Active Substance: CLOPIDOGREL BISULFATE
  6. OCALIVA [Suspect]
     Active Substance: OBETICHOLIC ACID
     Dosage: 10 MG, QD
     Route: 048
     Dates: start: 20170227, end: 201709
  7. LITHIUM CARBON [Concomitant]
  8. LIOTHYRONINE [Concomitant]
     Active Substance: LIOTHYRONINE
  9. ATORVASTATIN [Concomitant]
     Active Substance: ATORVASTATIN
  10. LEVOTHYROXINE. [Concomitant]
     Active Substance: LEVOTHYROXINE
  11. QUETIAPINE. [Concomitant]
     Active Substance: QUETIAPINE
  12. OCALIVA [Suspect]
     Active Substance: OBETICHOLIC ACID
     Indication: PRIMARY BILIARY CHOLANGITIS
     Dosage: 5 MG, UNK
     Route: 048
     Dates: start: 20170224, end: 201702
  13. VRAYLAR [Concomitant]
     Active Substance: CARIPRAZINE

REACTIONS (4)
  - Pruritus [Recovering/Resolving]
  - Reaction to excipient [Recovered/Resolved]
  - Drug intolerance [Not Recovered/Not Resolved]
  - Drug administration error [Unknown]

NARRATIVE: CASE EVENT DATE: 20170927
